FAERS Safety Report 9230815 (Version 1)
Quarter: 2013Q2

REPORT INFORMATION
  Report Type: Spontaneous
  Country: IE (occurrence: IE)
  Receive Date: 20130415
  Receipt Date: 20130415
  Transmission Date: 20140414
  Serious: Yes (Other)
  Sender: FDA-Public Use
  Company Number: IE-ASTRAZENECA-2013SE22475

PATIENT
  Age: 44 Year
  Sex: Male
  Weight: 84 kg

DRUGS (2)
  1. VIMOVO [Suspect]
     Indication: TENDONITIS
     Dosage: 1 DF, TWO TIMES A DAY
     Route: 048
  2. SYMBICORT TURBOHALER [Concomitant]
     Dosage: 2 DF DAILY
     Route: 055

REACTIONS (1)
  - Skin haemorrhage [Recovered/Resolved]
